FAERS Safety Report 6148211-1 (Version None)
Quarter: 2009Q2

REPORT INFORMATION
  Report Type: 
  Country: None (occurrence: None)
  Receive Date: 20090406
  Receipt Date: 20090320
  Transmission Date: 20091009
  Serious: Yes (Death)
  Sender: FDA-Public Use
  Company Number: B0567313A

PATIENT
  Sex: 0

DRUGS (4)
  1. ALKERAN [Suspect]
     Indication: MULTIPLE MYELOMA
     Dosage: 200 MG/M2 / INTRAVENOUS
     Route: 042
  2. CYCLOPHOSPHAMIDE [Suspect]
     Indication: MULTIPLE MYELOMA
     Dosage: 7 G/M2 / INTRAVENOUS
     Route: 042
  3. CANCER CHEMOTHERAPY (FORMULATION UNKNOWN) (CANCER CHEMOTHERAPY) [Suspect]
     Indication: MULTIPLE MYELOMA
  4. AUTO STEM CELL INFUSION [Concomitant]

REACTIONS (1)
  - DRUG TOXICITY [None]
